FAERS Safety Report 13959209 (Version 2)
Quarter: 2017Q3

REPORT INFORMATION
  Report Type: Spontaneous
  Country: RU (occurrence: RU)
  Receive Date: 20170912
  Receipt Date: 20170927
  Transmission Date: 20171128
  Serious: Yes (Other)
  Sender: FDA-Public Use
  Company Number: RU-ROCHE-1988939

PATIENT
  Sex: Male

DRUGS (2)
  1. CEFTRIAXONE. [Suspect]
     Active Substance: CEFTRIAXONE
     Indication: PRODUCT USED FOR UNKNOWN INDICATION
     Route: 065
  2. ADRENALIN [Concomitant]
     Active Substance: EPINEPHRINE

REACTIONS (3)
  - Suspected counterfeit product [Unknown]
  - Coma [Unknown]
  - Anaphylactic shock [Unknown]
